FAERS Safety Report 20755994 (Version 1)
Quarter: 2022Q2

REPORT INFORMATION
  Report Type: Report from Study
  Country: IT (occurrence: IT)
  Receive Date: 20220427
  Receipt Date: 20220427
  Transmission Date: 20220721
  Serious: Yes (Hospitalization, Other)
  Sender: FDA-Public Use
  Company Number: None

PATIENT
  Age: 81 Year
  Sex: Male

DRUGS (13)
  1. FUROSEMIDE [Suspect]
     Active Substance: FUROSEMIDE
     Indication: Hypertension
     Dosage: 50 MILLIGRAM, QD
     Route: 048
     Dates: start: 20220101, end: 20220225
  2. BISOPROLOL [Suspect]
     Active Substance: BISOPROLOL
     Indication: Cardiac disorder
     Dosage: 2 DOSAGE FORM, QD
     Route: 048
     Dates: start: 20220101, end: 20220225
  3. LERCANIDIPINE HYDROCHLORIDE [Suspect]
     Active Substance: LERCANIDIPINE HYDROCHLORIDE
     Indication: Hypertension
     Dosage: 10 MILLIGRAM, QD
     Route: 048
     Dates: start: 20220101, end: 20220225
  4. METFORMIN [Concomitant]
     Active Substance: METFORMIN HYDROCHLORIDE
     Dosage: 1500 MILLIGRAM
  5. ATORVASTATIN [Concomitant]
     Active Substance: ATORVASTATIN
     Dosage: 40 MILLIGRAM
  6. OLMESARTAN MEDOXOMIL [Concomitant]
     Active Substance: OLMESARTAN MEDOXOMIL
     Dosage: 20 MILLIGRAM
  7. DUTASTERIDE [Concomitant]
     Active Substance: DUTASTERIDE
     Dosage: UNK
  8. ACLIDINIUM BROMIDE [Concomitant]
     Active Substance: ACLIDINIUM BROMIDE
     Dosage: UNK
  9. VENLAFAXINE [Concomitant]
     Active Substance: VENLAFAXINE HYDROCHLORIDE
     Dosage: 75 MILLIGRAM
  10. CITALOPRAM [Concomitant]
     Active Substance: CITALOPRAM HYDROBROMIDE
     Dosage: 20 MILLIGRAM
  11. CLOPIDOGREL [Concomitant]
     Active Substance: CLOPIDOGREL BISULFATE
     Dosage: 75 MILLIGRAM
  12. TERAZOSIN HYDROCHLORIDE [Concomitant]
     Active Substance: TERAZOSIN HYDROCHLORIDE
     Dosage: 5 MILLIGRAM
  13. LANSOPRAZOLE [Concomitant]
     Active Substance: LANSOPRAZOLE
     Dosage: 15 MILLIGRAM

REACTIONS (2)
  - Syncope [Recovering/Resolving]
  - Renal impairment [Unknown]

NARRATIVE: CASE EVENT DATE: 20220225
